FAERS Safety Report 19656693 (Version 1)
Quarter: 2021Q3

REPORT INFORMATION
  Report Type: Spontaneous
  Country: US (occurrence: US)
  Receive Date: 20210803
  Receipt Date: 20210803
  Transmission Date: 20211014
  Serious: Yes (Other)
  Sender: FDA-Public Use
  Company Number: None

PATIENT
  Age: 87 Year
  Sex: Female
  Weight: 79.8 kg

DRUGS (1)
  1. MORPHINE ORAL SOLN [Suspect]
     Active Substance: MORPHINE
     Indication: ANGINA PECTORIS
     Dosage: ?          OTHER FREQUENCY:Q4H PM ;?
     Route: 048
     Dates: start: 20210715

REACTIONS (3)
  - Suspected product tampering [None]
  - Manufacturing materials issue [None]
  - Drug ineffective [None]

NARRATIVE: CASE EVENT DATE: 20210716
